FAERS Safety Report 12837620 (Version 1)
Quarter: 2016Q4

REPORT INFORMATION
  Report Type: Spontaneous
  Country: US (occurrence: US)
  Receive Date: 20161012
  Receipt Date: 20161012
  Transmission Date: 20170207
  Serious: No
  Sender: FDA-Public Use
  Company Number: US-AMGEN-USASP2016136080

PATIENT
  Age: 53 Year
  Sex: Female

DRUGS (1)
  1. ENBREL [Suspect]
     Active Substance: ETANERCEPT
     Indication: PSORIASIS
     Dosage: UNK UNK, QWK
     Route: 065
     Dates: start: 201606

REACTIONS (12)
  - Ear discomfort [Unknown]
  - Underdose [Unknown]
  - Mood altered [Unknown]
  - Infection [Unknown]
  - Injection site haemorrhage [Unknown]
  - Hypoacusis [Unknown]
  - Injection site pain [Unknown]
  - Pain [Unknown]
  - Skin discolouration [Not Recovered/Not Resolved]
  - Wrong technique in product usage process [Unknown]
  - Pain in extremity [Unknown]
  - Psoriasis [Unknown]

NARRATIVE: CASE EVENT DATE: 2016
